FAERS Safety Report 12207926 (Version 4)
Quarter: 2016Q2

REPORT INFORMATION
  Report Type: Report from Study
  Country: HU (occurrence: HU)
  Receive Date: 20160324
  Receipt Date: 20160617
  Transmission Date: 20160815
  Serious: Yes (Death, Other)
  Sender: FDA-Public Use
  Company Number: HU-ABBVIE-16P-076-1588622-00

PATIENT
  Age: 86 Year
  Sex: Male
  Weight: 88 kg

DRUGS (3)
  1. DUODOPA [Suspect]
     Active Substance: CARBIDOPA\LEVODOPA
     Indication: PARKINSON^S DISEASE
     Dosage: MD 1ML; CD DAY: 3.6ML/H; CD NIGHT 2.9ML/H;, ED: 1.0ML
     Route: 050
     Dates: start: 201304
  2. TRITACE HCT [Concomitant]
     Indication: HYPERTENSION
     Dosage: 2.5/12.5 MG, HALF TABLET AT A TIME
     Route: 048
  3. TRUXA [Concomitant]
     Indication: HALLUCINATION
     Route: 048

REACTIONS (6)
  - Parkinson^s disease [Fatal]
  - Arteriosclerosis [Fatal]
  - Pulmonary oedema [Fatal]
  - Pneumonia [Fatal]
  - Pyrexia [Not Recovered/Not Resolved]
  - General physical health deterioration [Not Recovered/Not Resolved]

NARRATIVE: CASE EVENT DATE: 201602
